FAERS Safety Report 7367649-8 (Version None)
Quarter: 2011Q1

REPORT INFORMATION
  Report Type: 
  Country: None (occurrence: None)
  Receive Date: 20110322
  Receipt Date: 20110317
  Transmission Date: 20110831
  Serious: Yes (Death)
  Sender: FDA-Public Use
  Company Number: US-CELGENEUS-163-21880-11032175

PATIENT
  Age: 74 Year
  Sex: Female

DRUGS (11)
  1. FLUOXETINE [Concomitant]
     Route: 065
  2. TRAZODONE [Concomitant]
     Route: 065
  3. DEXAMETHASONE [Concomitant]
     Indication: MULTIPLE MYELOMA
     Route: 065
     Dates: start: 20100101
  4. FAMOTIDINE [Concomitant]
     Route: 065
  5. REVLIMID [Suspect]
     Indication: MULTIPLE MYELOMA
     Route: 048
     Dates: start: 20060401, end: 20080501
  6. REVLIMID [Suspect]
     Dosage: 10 MILLIGRAM
     Route: 048
     Dates: start: 20100101, end: 20100401
  7. PREDNISOLONE [Concomitant]
     Route: 065
  8. POTASSIM CHLORIDE [Concomitant]
     Route: 065
  9. BIAXIN [Concomitant]
     Indication: MULTIPLE MYELOMA
     Route: 065
     Dates: start: 20100101
  10. DOCUSATE [Concomitant]
     Route: 065
  11. ALENDRONATE [Concomitant]
     Route: 065

REACTIONS (1)
  - DEATH [None]
